FAERS Safety Report 4531748-6 (Version None)
Quarter: 2004Q4

REPORT INFORMATION
  Report Type: 
  Country: None (occurrence: None)
  Receive Date: 20041206
  Receipt Date: 20040923
  Transmission Date: 20050328
  Serious: No
  Sender: FDA-Public Use
  Company Number: USA040979149

PATIENT
  Sex: Female

DRUGS (6)
  1. CYMBALTA [Suspect]
     Indication: FIBROMYALGIA
     Dosage: 20 MG DAY
     Dates: start: 20040920, end: 20040926
  2. ACETAMINOPHEN W/ HYDROCODONE [Concomitant]
  3. PROTONIX [Concomitant]
  4. AMBIEN [Concomitant]
  5. NEURONTIN (GABAPENTIN PFIZER) [Concomitant]
  6. METOPROLOL [Concomitant]

REACTIONS (8)
  - ASTHENIA [None]
  - ATAXIA [None]
  - DIZZINESS [None]
  - ERUCTATION [None]
  - GASTROINTESTINAL DISORDER [None]
  - RESTLESSNESS [None]
  - SLEEP DISORDER [None]
  - TREMOR [None]
